FAERS Safety Report 16663566 (Version 1)
Quarter: 2019Q3

REPORT INFORMATION
  Report Type: Spontaneous
  Country: NL (occurrence: NL)
  Receive Date: 20190802
  Receipt Date: 20190802
  Transmission Date: 20191004
  Serious: Yes (Other)
  Sender: FDA-Public Use
  Company Number: NL-JNJFOC-20190736530

PATIENT
  Age: 6 Decade
  Sex: Male

DRUGS (1)
  1. TREMFYA [Suspect]
     Active Substance: GUSELKUMAB
     Indication: PRODUCT USED FOR UNKNOWN INDICATION
     Route: 065
     Dates: start: 20180516

REACTIONS (6)
  - Pain [Unknown]
  - Tendon pain [Unknown]
  - Muscle spasms [Unknown]
  - Bedridden [Unknown]
  - Hypoaesthesia [Unknown]
  - Myalgia [Unknown]

NARRATIVE: CASE EVENT DATE: 201812
